FAERS Safety Report 10063533 (Version 1)
Quarter: 2014Q2

REPORT INFORMATION
  Report Type: Spontaneous
  Country: US (occurrence: US)
  Receive Date: 20140407
  Receipt Date: 20140407
  Transmission Date: 20141212
  Serious: No
  Sender: FDA-Public Use
  Company Number: US-009507513-1404USA000333

PATIENT
  Age: 66 Year
  Sex: Male

DRUGS (13)
  1. K-DUR [Suspect]
     Indication: HYPOKALAEMIA
     Dosage: 20 MEQ, QD
     Route: 048
  2. DILTIAZEM HYDROCHLORIDE [Concomitant]
     Dosage: 240 MG, QD
     Route: 048
     Dates: start: 201304
  3. CHLORTHALIDONE [Concomitant]
     Dosage: 25 MG, QAM
     Route: 048
     Dates: start: 201401
  4. VALSARTAN [Concomitant]
     Dosage: 160 MG, HS
     Route: 048
     Dates: start: 201310
  5. ASPIRIN [Concomitant]
     Dosage: 81 MG, QD
     Route: 048
  6. PRAVASTATIN SODIUM [Concomitant]
     Dosage: 40 MG, HS
     Route: 048
  7. IBUPROFEN [Concomitant]
     Indication: PAIN
     Dosage: 800 MG, TID AS NEEDED
     Route: 048
  8. MORPHINE SULFATE [Concomitant]
     Indication: PAIN
     Dosage: 15 MG, HS
     Route: 048
  9. OXYCODONE [Concomitant]
     Indication: PAIN
     Dosage: 5 MG, TWICE DAILY AS NEEDED
     Route: 048
  10. OMEPRAZOLE [Concomitant]
     Dosage: 20 MG, EVERY MORNING BEFORE MEALS
     Route: 048
  11. CYANOCOBALAMIN [Concomitant]
     Dosage: 1000 UG ONCE DAILY
     Route: 048
  12. FOLIC ACID [Concomitant]
     Dosage: 1 MG, QD
     Route: 048
  13. THIAMINE [Concomitant]
     Dosage: 100 MG, QD
     Route: 048

REACTIONS (1)
  - Drug ineffective [Recovered/Resolved]
